FAERS Safety Report 9553294 (Version 3)
Quarter: 2014Q2

REPORT INFORMATION
  Report Type: Report from Study
  Country: DE (occurrence: DE)
  Receive Date: 20130925
  Receipt Date: 20140602
  Transmission Date: 20141212
  Serious: Yes (Hospitalization)
  Sender: FDA-Public Use
  Company Number: DE-ABBVIE-13P-062-1149257-00

PATIENT
  Sex: Male
  Weight: 68 kg

DRUGS (7)
  1. HUMIRA [Suspect]
     Indication: RHEUMATOID ARTHRITIS
     Route: 058
     Dates: start: 200606, end: 201310
  2. HUMIRA [Suspect]
     Dosage: 1 INJECTION OMITTED
     Dates: start: 201310, end: 201312
  3. HUMIRA [Suspect]
     Route: 058
     Dates: start: 201312
  4. LANTAREL [Concomitant]
     Indication: PRODUCT USED FOR UNKNOWN INDICATION
  5. FOLIC ACID [Concomitant]
     Indication: PRODUCT USED FOR UNKNOWN INDICATION
  6. CALCILAC [Concomitant]
     Indication: PRODUCT USED FOR UNKNOWN INDICATION
  7. EYE DROPS [Concomitant]
     Indication: PRODUCT USED FOR UNKNOWN INDICATION

REACTIONS (2)
  - Retinal detachment [Recovered/Resolved]
  - Eye operation [Recovered/Resolved]
